FAERS Safety Report 11170009 (Version 1)
Quarter: 2015Q2

REPORT INFORMATION
  Report Type: Spontaneous
  Country: US (occurrence: US)
  Receive Date: 20150608
  Receipt Date: 20150608
  Transmission Date: 20150821
  Serious: No
  Sender: FDA-Public Use
  Company Number: US-009507513-1506USA003594

PATIENT
  Sex: Female

DRUGS (1)
  1. NUVARING [Suspect]
     Active Substance: ETHINYL ESTRADIOL\ETONOGESTREL
     Indication: CONTRACEPTION
     Dosage: ^1 RING^ PER 3 WEEKS, STRENGTH WAS REPORTED AS 0.015/0.12 (NO UNIT PROVIDED)
     Route: 067
     Dates: end: 201505

REACTIONS (1)
  - Headache [Unknown]

NARRATIVE: CASE EVENT DATE: 201505
